FAERS Safety Report 8074415-7 (Version None)
Quarter: 2012Q1

REPORT INFORMATION
  Report Type: 
  Country: None (occurrence: None)
  Receive Date: 20120126
  Receipt Date: 20120121
  Transmission Date: 20120608
  Serious: Yes (Other)
  Sender: FDA-Public Use
  Company Number: JP-VIIV HEALTHCARE LIMITED-B0770750A

PATIENT
  Age: 23 Day
  Sex: Female
  Weight: 2.2 kg

DRUGS (4)
  1. RETROVIR [Suspect]
     Indication: PROPHYLAXIS AGAINST HIV INFECTION
     Dosage: 16.8MG PER DAY
     Route: 048
     Dates: start: 20091125, end: 20120105
  2. RETROVIR [Suspect]
     Dosage: 400MG PER DAY
     Route: 065
     Dates: start: 20091125, end: 20091125
  3. COMBIVIR [Suspect]
     Indication: HIV INFECTION
     Dosage: 2IUAX PER DAY
     Route: 064
  4. KALETRA [Suspect]
     Indication: PROPHYLAXIS AGAINST HIV INFECTION
     Dosage: 4IUAX PER DAY
     Route: 064

REACTIONS (2)
  - FOETAL EXPOSURE DURING PREGNANCY [None]
  - ANAEMIA [None]
